FAERS Safety Report 8535849-7 (Version None)
Quarter: 2012Q3

REPORT INFORMATION
  Report Type: 
  Country: None (occurrence: None)
  Receive Date: 20120718
  Receipt Date: 20120718
  Transmission Date: 20120928
  Serious: Yes (Death)
  Sender: FDA-Public Use
  Company Number: None

PATIENT
  Sex: Male
  Weight: 79.8331 kg

DRUGS (1)
  1. RIFAMPICIN [Suspect]
     Indication: MULTIPLE SYSTEM ATROPHY
     Dosage: 300 MG BID
     Dates: start: 20120216, end: 20120624

REACTIONS (5)
  - ASPIRATION [None]
  - MULTI-ORGAN DISORDER [None]
  - BRAIN DEATH [None]
  - VOMITING [None]
  - CEREBROVASCULAR ACCIDENT [None]
